FAERS Safety Report 12105955 (Version 2)
Quarter: 2016Q1

REPORT INFORMATION
  Report Type: Spontaneous
  Country: JP (occurrence: JP)
  Receive Date: 20160223
  Receipt Date: 20160309
  Transmission Date: 20160526
  Serious: Yes (Life-Threatening, Hospitalization, Disabling, Other)
  Sender: FDA-Public Use
  Company Number: JP-CELGENE-JPN-2016025050

PATIENT
  Age: 72 Year
  Sex: Male
  Weight: 60 kg

DRUGS (8)
  1. CELECOX [Suspect]
     Active Substance: CELECOXIB
     Indication: CANCER PAIN
     Route: 065
     Dates: start: 20160201, end: 20160212
  2. ONON [Concomitant]
     Active Substance: PRANLUKAST
     Indication: ASTHMA
     Dosage: 40 MILLIGRAM
     Route: 048
  3. ABRAXANE [Suspect]
     Active Substance: PACLITAXEL
     Indication: PANCREATIC CARCINOMA METASTATIC
     Dosage: 120 MILLIGRAM
     Route: 041
     Dates: start: 20160204, end: 20160204
  4. TRAMAL [Concomitant]
     Active Substance: TRAMADOL
     Indication: CANCER PAIN
     Route: 048
     Dates: start: 20160201, end: 20160212
  5. NEXIUM [Concomitant]
     Active Substance: ESOMEPRAZOLE MAGNESIUM
     Indication: PROPHYLAXIS AGAINST GASTROINTESTINAL ULCER
     Route: 048
     Dates: start: 20160201, end: 20160212
  6. LIPACREON [Concomitant]
     Active Substance: PANCRELIPASE
     Indication: PANCREATIC INSUFFICIENCY
     Route: 048
     Dates: start: 20160201, end: 20160212
  7. GEMCITABINE HYDROCHLORIDE. [Suspect]
     Active Substance: GEMCITABINE HYDROCHLORIDE
     Indication: PANCREATIC CARCINOMA METASTATIC
     Route: 041
     Dates: start: 20160204, end: 20160204
  8. OPALMON [Concomitant]
     Active Substance: LIMAPROST
     Indication: SPINAL COLUMN STENOSIS
     Route: 048

REACTIONS (3)
  - Myocardial infarction [Not Recovered/Not Resolved]
  - Platelet count decreased [Unknown]
  - Cerebral haemorrhage [Not Recovered/Not Resolved]

NARRATIVE: CASE EVENT DATE: 20160212
